FAERS Safety Report 18854092 (Version 1)
Quarter: 2021Q1

REPORT INFORMATION
  Report Type: Spontaneous
  Country: US (occurrence: US)
  Receive Date: 20210205
  Receipt Date: 20210205
  Transmission Date: 20210420
  Serious: Yes (Hospitalization)
  Sender: FDA-Public Use
  Company Number: US-FRESENIUS KABI-FK202101217

PATIENT
  Age: 55 Year
  Sex: Female

DRUGS (3)
  1. TRETINOIN. [Suspect]
     Active Substance: TRETINOIN
     Indication: ACUTE PROMYELOCYTIC LEUKAEMIA
     Route: 048
     Dates: start: 20201102
  2. GEMTUZUMAB OZOGAMICIN [Suspect]
     Active Substance: GEMTUZUMAB OZOGAMICIN
     Indication: WHITE BLOOD CELL COUNT INCREASED
     Route: 042
     Dates: start: 20201105, end: 20201105
  3. ARSENIC TRIOXIDE (MANUFACTURER UNKNOWN) [Suspect]
     Active Substance: ARSENIC TRIOXIDE
     Indication: ACUTE PROMYELOCYTIC LEUKAEMIA
     Route: 042
     Dates: start: 20201102, end: 20201230

REACTIONS (1)
  - Hypercalcaemia [Recovered/Resolved]

NARRATIVE: CASE EVENT DATE: 20201231
